FAERS Safety Report 6179786-4 (Version None)
Quarter: 2009Q2

REPORT INFORMATION
  Report Type: 
  Country: None (occurrence: None)
  Receive Date: 20090505
  Receipt Date: 20090430
  Transmission Date: 20091009
  Serious: Yes (Other)
  Sender: FDA-Public Use
  Company Number: US-PFIZER INC-2009206618

PATIENT
  Sex: Female
  Weight: 69.4 kg

DRUGS (1)
  1. TOVIAZ [Suspect]
     Indication: HYPERTONIC BLADDER
     Dates: start: 20090421, end: 20090423

REACTIONS (3)
  - ANXIETY [None]
  - CHEST PAIN [None]
  - PALPITATIONS [None]
